FAERS Safety Report 20080420 (Version 1)
Quarter: 2021Q4

REPORT INFORMATION
  Report Type: Spontaneous
  Country: US (occurrence: None)
  Receive Date: 20211116
  Receipt Date: 20211116
  Transmission Date: 20220304
  Serious: Yes (Life-Threatening, Hospitalization, Disabling, Congenital Anomaly, Other)
  Sender: FDA-Public Use
  Company Number: None

PATIENT
  Age: 33 Year
  Sex: Female
  Weight: 100.35 kg

DRUGS (3)
  1. DIFLUCAN [Suspect]
     Active Substance: FLUCONAZOLE
     Indication: Fungal infection
     Route: 048
     Dates: start: 20200124, end: 20200125
  2. progesterone vaginal tablets [Concomitant]
  3. Prenatal vitamin vital pearl [Concomitant]

REACTIONS (8)
  - Maternal exposure during pregnancy [None]
  - Premature baby [None]
  - Maternal drugs affecting foetus [None]
  - Craniosynostosis [None]
  - Congenital torticollis [None]
  - Plagiocephaly [None]
  - Premature labour [None]
  - Twin pregnancy [None]

NARRATIVE: CASE EVENT DATE: 20200220
